FAERS Safety Report 16079106 (Version 1)
Quarter: 2019Q1

REPORT INFORMATION
  Report Type: Spontaneous
  Country: US (occurrence: US)
  Receive Date: 20190315
  Receipt Date: 20190315
  Transmission Date: 20190418
  Serious: Yes (Other)
  Sender: FDA-Public Use
  Company Number: US-TEVA-2019-US-1024596

PATIENT
  Sex: Female

DRUGS (1)
  1. MONTELUKAST SODIUM TABLET [Suspect]
     Active Substance: MONTELUKAST SODIUM
     Indication: HYPERSENSITIVITY
     Route: 065
     Dates: start: 2012

REACTIONS (1)
  - Clostridium difficile infection [Unknown]
